FAERS Safety Report 5045794-X (Version None)
Quarter: 2006Q3

REPORT INFORMATION
  Report Type: 
  Country: None (occurrence: None)
  Receive Date: 20060710
  Receipt Date: 20060626
  Transmission Date: 20061208
  Serious: Yes (Life-Threatening, Hospitalization)
  Sender: FDA-Public Use
  Company Number: IE-AMGEN-UK184386

PATIENT
  Sex: Male
  Weight: 30 kg

DRUGS (6)
  1. KINERET [Suspect]
     Indication: JUVENILE ARTHRITIS
     Route: 058
     Dates: start: 20051204, end: 20060518
  2. PREDNISOLONE [Concomitant]
     Route: 048
     Dates: start: 20010101
  3. FELDENE [Concomitant]
     Route: 048
     Dates: start: 20040101
  4. INDOMETHACIN [Concomitant]
     Route: 048
     Dates: start: 20010101
  5. FERROUS FUMARATE [Concomitant]
     Route: 048
     Dates: start: 20030101
  6. CALCICHEW-D3 [Concomitant]
     Route: 048
     Dates: start: 20040101

REACTIONS (3)
  - COLITIS [None]
  - HISTIOCYTOSIS HAEMATOPHAGIC [None]
  - VIRAL INFECTION [None]
